FAERS Safety Report 7030020-2 (Version None)
Quarter: 2010Q4

REPORT INFORMATION
  Report Type: 
  Country: None (occurrence: None)
  Receive Date: 20101006
  Receipt Date: 20100928
  Transmission Date: 20110411
  Serious: Yes (Hospitalization)
  Sender: FDA-Public Use
  Company Number: PHHY2010US49821

PATIENT
  Sex: Female

DRUGS (1)
  1. FANAPT [Suspect]
     Indication: SCHIZOAFFECTIVE DISORDER
     Dosage: 3 MG, BID
     Route: 048
     Dates: start: 20100721

REACTIONS (2)
  - INSOMNIA [None]
  - RESTLESSNESS [None]
